FAERS Safety Report 9072517 (Version 1)
Quarter: 2013Q1

REPORT INFORMATION
  Report Type: Report from Study
  Country: US (occurrence: US)
  Receive Date: 20130128
  Receipt Date: 20130128
  Transmission Date: 20140127
  Serious: No
  Sender: FDA-Public Use
  Company Number: US-ABBOTT-12P-163-0917232-00

PATIENT
  Age: 72 Year
  Sex: Female

DRUGS (6)
  1. HUMIRA 40 MG/0.8 ML PEN [Suspect]
     Indication: RHEUMATOID ARTHRITIS
     Dates: start: 20120116
  2. ZOCOR [Concomitant]
     Indication: BLOOD CHOLESTEROL
     Dosage: 20 MG DAILY
  3. HYZAAR [Concomitant]
     Indication: BLOOD PRESSURE
     Dosage: 10/25 MG X 1 TAB DAILY
  4. COZAAR [Concomitant]
     Indication: BLOOD PRESSURE
     Dosage: 50 MG DAILY
  5. ATIVAN [Concomitant]
     Indication: PRODUCT USED FOR UNKNOWN INDICATION
     Dosage: PRN
  6. TRAMADOL [Concomitant]
     Indication: PAIN
     Dosage: 50 MG X THREE TIMES A DAY, AS REQUIRED

REACTIONS (1)
  - Drug ineffective [Not Recovered/Not Resolved]
